FAERS Safety Report 6937639-5 (Version None)
Quarter: 2010Q3

REPORT INFORMATION
  Report Type: 
  Country: None (occurrence: None)
  Receive Date: 20100820
  Receipt Date: 20100820
  Transmission Date: 20110219
  Serious: Yes (Other)
  Sender: FDA-Public Use
  Company Number: None

PATIENT
  Sex: Female
  Weight: 51.7101 kg

DRUGS (6)
  1. SEROQUEL XR [Suspect]
     Indication: BIPOLAR DISORDER
     Dosage: 400 MG 1 TABLET AT NIGHT
     Dates: start: 20100701, end: 20100801
  2. LITHIUM [Concomitant]
  3. SEREQUEL [Concomitant]
  4. CITALOPRAM [Concomitant]
  5. CLONAZAPAM [Concomitant]
  6. DARVOCET [Concomitant]

REACTIONS (3)
  - ABNORMAL BEHAVIOUR [None]
  - AGGRESSION [None]
  - HOSTILITY [None]
